FAERS Safety Report 8512770-1 (Version None)
Quarter: 2012Q3

REPORT INFORMATION
  Report Type: 
  Country: None (occurrence: None)
  Receive Date: 20120716
  Receipt Date: 20120706
  Transmission Date: 20120928
  Serious: Yes (Other)
  Sender: FDA-Public Use
  Company Number: US-ASTRAZENECA-2010SE11421

PATIENT
  Age: 88 Year
  Sex: Female

DRUGS (4)
  1. ALEVE [Concomitant]
  2. IBUPROFEN (ADVIL) [Concomitant]
  3. NEXIUM [Suspect]
     Route: 048
  4. SYMBICORT [Suspect]
     Route: 055

REACTIONS (7)
  - MALAISE [None]
  - ANKLE FRACTURE [None]
  - FALL [None]
  - FEELING ABNORMAL [None]
  - DYSPHONIA [None]
  - CHRONIC OBSTRUCTIVE PULMONARY DISEASE [None]
  - GASTROOESOPHAGEAL REFLUX DISEASE [None]
